FAERS Safety Report 12899863 (Version 1)
Quarter: 2016Q4

REPORT INFORMATION
  Report Type: Spontaneous
  Country: GB (occurrence: GB)
  Receive Date: 20161101
  Receipt Date: 20161101
  Transmission Date: 20170207
  Serious: Yes (Hospitalization, Other)
  Sender: FDA-Public Use
  Company Number: GB-TEVA-707134ACC

PATIENT
  Age: 34 Year
  Sex: Female

DRUGS (1)
  1. TRIMETHOPRIM. [Suspect]
     Active Substance: TRIMETHOPRIM
     Indication: URINARY TRACT INFECTION
     Route: 048
     Dates: start: 20161006, end: 20161008

REACTIONS (4)
  - Dyspnoea [Recovered/Resolved]
  - Local swelling [Recovered/Resolved with Sequelae]
  - Pyelonephritis [Unknown]
  - Mouth swelling [Recovered/Resolved with Sequelae]

NARRATIVE: CASE EVENT DATE: 20161007
